FAERS Safety Report 8858932 (Version 1)
Quarter: 2012Q4

REPORT INFORMATION
  Report Type: 
  Country: SE (occurrence: SE)
  Receive Date: 20121024
  Receipt Date: 20121024
  Transmission Date: 20130627
  Serious: Yes (Hospitalization, Other)
  Sender: FDA-Public Use
  Company Number: SE-BAYER-2012-095810

PATIENT
  Age: 35 Year
  Sex: Female

DRUGS (2)
  1. MIRENA [Suspect]
     Indication: HORMONE LEVEL ABNORMAL
     Dosage: 20 ?g/d, CONT
     Route: 015
     Dates: start: 20120412, end: 20120824
  2. MIRENA [Suspect]
     Indication: CONTRACEPTION

REACTIONS (4)
  - Pneumonia [Recovered/Resolved]
  - Endometritis [Recovered/Resolved]
  - Abdominal pain [Recovered/Resolved]
  - Pyrexia [Recovered/Resolved]
